FAERS Safety Report 6057320-7 (Version None)
Quarter: 2009Q1

REPORT INFORMATION
  Report Type: 
  Country: None (occurrence: None)
  Receive Date: 20090129
  Receipt Date: 20081003
  Transmission Date: 20090719
  Serious: No
  Sender: FDA-Public Use
  Company Number: A0750493A

PATIENT
  Age: 55 Year
  Sex: Female

DRUGS (2)
  1. WELLBUTRIN [Suspect]
     Dosage: 2TAB PER DAY
     Route: 048
     Dates: start: 20050101
  2. NO CONCURRENT MEDICATION [Concomitant]

REACTIONS (4)
  - DRUG ADMINISTRATION ERROR [None]
  - EYE SWELLING [None]
  - HYPERSENSITIVITY [None]
  - URTICARIA [None]
